FAERS Safety Report 17576872 (Version 1)
Quarter: 2020Q1

REPORT INFORMATION
  Report Type: Report from Study
  Country: CA (occurrence: CA)
  Receive Date: 20200324
  Receipt Date: 20200324
  Transmission Date: 20200409
  Serious: Yes (Other)
  Sender: FDA-Public Use
  Company Number: CA-PFIZER INC-2020123381

PATIENT
  Age: 74 Year
  Sex: Male
  Weight: 72 kg

DRUGS (12)
  1. CALCIUM [Concomitant]
     Active Substance: CALCIUM
     Indication: SUPPLEMENTATION THERAPY
     Dosage: UNK, 1X/DAY
     Route: 048
  2. SALAZOPYRIN [Concomitant]
     Active Substance: SULFASALAZINE
     Indication: ANTIINFLAMMATORY THERAPY
     Dosage: 500 MG, 4X/DAY
     Route: 048
  3. ZINC. [Concomitant]
     Active Substance: ZINC
     Indication: HYPERHIDROSIS
     Dosage: 50.0 MG, 1X/DAY
     Route: 048
  4. HUMIRA [Suspect]
     Active Substance: ADALIMUMAB
     Indication: RHEUMATOID ARTHRITIS
     Dosage: 40 MG, CYCLIC  [1 EVERY 2 WEEKS]
     Route: 058
  5. FOLIC ACID. [Concomitant]
     Active Substance: FOLIC ACID
     Dosage: 1 MG, 1X/DAY
     Route: 048
  6. IRON [Concomitant]
     Active Substance: IRON
     Dosage: 300 MG, 2X/DAY
     Route: 058
  7. HUMIRA [Suspect]
     Active Substance: ADALIMUMAB
     Dosage: 40 MG, CYCLIC [1 EVERY 2 WEEKS]
     Route: 058
  8. RAMIPRIL. [Concomitant]
     Active Substance: RAMIPRIL
     Indication: BLOOD PRESSURE ABNORMAL
     Dosage: 12.5 MG, 1X/DAY
     Route: 048
  9. SANDOZ PANTOPRAZOL [Concomitant]
     Indication: DYSPEPSIA
     Dosage: 40 MG, 1X/DAY
     Route: 048
  10. ARTHROTEC [Suspect]
     Active Substance: DICLOFENAC SODIUM\MISOPROSTOL
     Indication: ARTHRITIS
     Dosage: 200 MG, 3X/DAY
     Route: 048
  11. ERGOCALCIFEROL. [Concomitant]
     Active Substance: ERGOCALCIFEROL
     Indication: SUPPLEMENTATION THERAPY
     Dosage: UNK, 1X/DAY
     Route: 048
  12. SYNTHROID [Concomitant]
     Active Substance: LEVOTHYROXINE SODIUM
     Indication: THYROID DISORDER
     Dosage: 60.5 MG, 1X/DAY
     Route: 048

REACTIONS (5)
  - Joint dislocation [Not Recovered/Not Resolved]
  - Knee deformity [Not Recovered/Not Resolved]
  - Arthritis [Not Recovered/Not Resolved]
  - Post procedural sepsis [Not Recovered/Not Resolved]
  - Arthropathy [Not Recovered/Not Resolved]
